FAERS Safety Report 4972808-5 (Version None)
Quarter: 2006Q2

REPORT INFORMATION
  Report Type: 
  Country: None (occurrence: None)
  Receive Date: 20060414
  Receipt Date: 20060131
  Transmission Date: 20061013
  Serious: Yes (Death, Hospitalization)
  Sender: FDA-Public Use
  Company Number: US-BRISTOL-MYERS SQUIBB COMPANY-13268081

PATIENT
  Age: 58 Year
  Sex: Male
  Weight: 72 kg

DRUGS (12)
  1. ERBITUX [Suspect]
     Indication: PANCREATIC CARCINOMA
     Dosage: 400MG/M2(DAY 1 CYCLE 1 ONLY-18-JAN)-TOTAL DOSE 740 MG,PER PROTOCOL THEN 250 MG/M2 DAY 8,15,22,29,36.
     Route: 042
     Dates: start: 20060118, end: 20060118
  2. DOCETAXEL [Suspect]
     Indication: PANCREATIC CARCINOMA
     Dosage: LAST ON 18-JAN-2006 ,TOTAL DOSE 65 MG. PER PROTOCOL GIVEN DAYS 1,8,15, 22.
     Route: 042
     Dates: start: 20060118, end: 20060118
  3. IRINOTECAN [Suspect]
     Indication: PANCREATIC CARCINOMA
     Dosage: LAST ON 18-JAN-06(TOTAL DOSE 93 MG)-PER PROTOCOL GIVEN DAYS 1,8,15 + 22.
     Route: 042
     Dates: start: 20060118, end: 20060118
  4. ARGATROBAN [Suspect]
  5. SYNTHROID [Concomitant]
     Route: 048
  6. PROTONIX [Concomitant]
     Route: 048
  7. ATACAND [Concomitant]
     Route: 048
  8. COUMADIN [Concomitant]
     Dosage: 2.5 MG TO ALTERNATE WITH 5 MG DAILY.
     Route: 048
  9. MULTI-VITAMIN [Concomitant]
     Route: 048
  10. CALCIUM SUPPLEMENT [Concomitant]
     Route: 048
  11. IMODIUM [Concomitant]
     Indication: DIARRHOEA
  12. ENSURE [Concomitant]

REACTIONS (14)
  - ALANINE AMINOTRANSFERASE INCREASED [None]
  - CARDIOPULMONARY FAILURE [None]
  - DIARRHOEA [None]
  - DISEASE PROGRESSION [None]
  - FATIGUE [None]
  - GASTROINTESTINAL HAEMORRHAGE [None]
  - GENERAL PHYSICAL HEALTH DETERIORATION [None]
  - HAEMATURIA [None]
  - HAEMOGLOBIN DECREASED [None]
  - HYPONATRAEMIA [None]
  - NEUTROPHIL COUNT DECREASED [None]
  - SEPSIS [None]
  - THROMBOSIS [None]
  - WHITE BLOOD CELL COUNT DECREASED [None]
